FAERS Safety Report 6394046-4 (Version None)
Quarter: 2009Q4

REPORT INFORMATION
  Report Type: 
  Country: None (occurrence: None)
  Receive Date: 20091008
  Receipt Date: 20091005
  Transmission Date: 20100525
  Serious: Yes (Death, Hospitalization)
  Sender: FDA-Public Use
  Company Number: PHHY2009GB42937

PATIENT
  Age: 95 Year
  Sex: Female

DRUGS (2)
  1. DICLOFENAC SODIUM [Suspect]
     Indication: ARTHRALGIA
     Dosage: 50 MG, TID
     Route: 048
     Dates: start: 20090821, end: 20090912
  2. PREDNISOLONE [Concomitant]
     Indication: ARTHRITIS
     Dosage: UNK

REACTIONS (10)
  - ANAEMIA [None]
  - BEDRIDDEN [None]
  - CATARACT OPERATION [None]
  - DIZZINESS [None]
  - FATIGUE [None]
  - GASTROINTESTINAL EROSION [None]
  - GASTROINTESTINAL HAEMORRHAGE [None]
  - LOSS OF CONSCIOUSNESS [None]
  - LOWER RESPIRATORY TRACT INFECTION [None]
  - URINARY TRACT INFECTION [None]
